FAERS Safety Report 8587786-X (Version None)
Quarter: 2012Q3

REPORT INFORMATION
  Report Type: 
  Country: None (occurrence: None)
  Receive Date: 20120813
  Receipt Date: 20120802
  Transmission Date: 20120928
  Serious: Yes (Hospitalization)
  Sender: FDA-Public Use
  Company Number: US-BIOGENIDEC-2012BI021079

PATIENT
  Age: 49 Year
  Sex: Female

DRUGS (1)
  1. TYSABRI [Suspect]
     Indication: MULTIPLE SCLEROSIS
     Route: 042
     Dates: start: 20091125, end: 20120401

REACTIONS (7)
  - UROSEPSIS [None]
  - DYSSTASIA [None]
  - KIDNEY INFECTION [None]
  - BACTERIAL DISEASE CARRIER [None]
  - ABASIA [None]
  - PNEUMONIA [None]
  - NEPHROLITHIASIS [None]
